FAERS Safety Report 8971724 (Version 1)
Quarter: 2012Q4

REPORT INFORMATION
  Report Type: 
  Country: US (occurrence: US)
  Receive Date: 20121217
  Receipt Date: 20121217
  Transmission Date: 20130627
  Serious: Yes (Other)
  Sender: FDA-Public Use
  Company Number: US-BAYER-2012-129889

PATIENT
  Sex: Female

DRUGS (2)
  1. ALEVE CAPLET/TABLET,MIDOL EXTENDED RELIEF CAPLET [Suspect]
     Dosage: 3 DF, UNK
  2. PARAGARD [Concomitant]

REACTIONS (4)
  - Muscle spasms [Recovered/Resolved]
  - Vaginal haemorrhage [None]
  - Abdominal pain upper [Recovered/Resolved]
  - Muscle spasms [None]
